FAERS Safety Report 12216888 (Version 2)
Quarter: 2016Q2

REPORT INFORMATION
  Report Type: Spontaneous
  Country: US (occurrence: US)
  Receive Date: 20160329
  Receipt Date: 20160511
  Transmission Date: 20160815
  Serious: No
  Sender: FDA-Public Use
  Company Number: US-LEO PHARMA-240987

PATIENT
  Age: 41 Year
  Sex: Female

DRUGS (3)
  1. PICATO [Suspect]
     Active Substance: INGENOL MEBUTATE
     Indication: ACTINIC KERATOSIS
     Route: 061
     Dates: start: 20160318, end: 20160320
  2. PICATO [Suspect]
     Active Substance: INGENOL MEBUTATE
     Dates: start: 201507
  3. SUBOXONE [Concomitant]
     Active Substance: BUPRENORPHINE HYDROCHLORIDE\NALOXONE HYDROCHLORIDE
     Indication: PRODUCT USED FOR UNKNOWN INDICATION

REACTIONS (10)
  - Eye swelling [Recovered/Resolved]
  - Application site exfoliation [Recovered/Resolved]
  - Eyelid oedema [Recovered/Resolved]
  - Application site swelling [Recovered/Resolved]
  - Wrong technique in product usage process [Recovered/Resolved]
  - Application site warmth [Recovered/Resolved]
  - Application site pain [Recovered/Resolved]
  - Inappropriate schedule of drug administration [Unknown]
  - Application site erythema [Recovered/Resolved]
  - Drug administration error [Unknown]

NARRATIVE: CASE EVENT DATE: 20160318
